FAERS Safety Report 15957000 (Version 2)
Quarter: 2019Q1

REPORT INFORMATION
  Report Type: Report from Study
  Country: None (occurrence: CO)
  Receive Date: 20190213
  Receipt Date: 20190314
  Transmission Date: 20190417
  Serious: Yes (Other)
  Sender: FDA-Public Use
  Company Number: CO-ABBVIE-19S-036-2663907-00

PATIENT
  Age: 40 Year
  Sex: Male
  Weight: 71 kg

DRUGS (1)
  1. ZEMPLAR [Suspect]
     Active Substance: PARICALCITOL
     Indication: HYPERPARATHYROIDISM SECONDARY
     Route: 048
     Dates: start: 20170428, end: 20190109

REACTIONS (1)
  - Medical device implantation [Not Recovered/Not Resolved]

NARRATIVE: CASE EVENT DATE: 20190204
